FAERS Safety Report 4263671-9 (Version None)
Quarter: 2004Q1

REPORT INFORMATION
  Report Type: 
  Country: None (occurrence: None)
  Receive Date: 20040102
  Receipt Date: 20031223
  Transmission Date: 20041129
  Serious: Yes (Other)
  Sender: FDA-Public Use
  Company Number: DE-JNJFOC-20031203837

PATIENT
  Age: 23 Year
  Sex: Female

DRUGS (2)
  1. TOPAMAX [Suspect]
     Indication: EPILEPSY
     Dosage: 125 MG, 1 IN 1 DAY, ORAL
     Route: 048
  2. CONTRACEPTIVE (ORAL CONTRACEPTIVE NOS0 [Concomitant]

REACTIONS (5)
  - DRUG INEFFECTIVE [None]
  - EXANTHEM [None]
  - GRAND MAL CONVULSION [None]
  - PRURITUS [None]
  - ROAD TRAFFIC ACCIDENT [None]
